FAERS Safety Report 19125618 (Version 2)
Quarter: 2021Q2

REPORT INFORMATION
  Report Type: Spontaneous
  Country: ES (occurrence: ES)
  Receive Date: 20210412
  Receipt Date: 20210517
  Transmission Date: 20210717
  Serious: Yes (Other)
  Sender: FDA-Public Use
  Company Number: ES-ORGANON-O2104ESP000864

PATIENT
  Age: 33 Year
  Sex: Female

DRUGS (2)
  1. IMPLANON NXT [Suspect]
     Active Substance: ETONOGESTREL
     Dosage: 1  IMPLANT
  2. IMPLANON NXT [Suspect]
     Active Substance: ETONOGESTREL
     Dosage: 1 IMPLANT

REACTIONS (5)
  - Complication of device removal [Not Recovered/Not Resolved]
  - Neuropathy peripheral [Unknown]
  - Device placement issue [Not Recovered/Not Resolved]
  - Incorrect product administration duration [Unknown]
  - Overdose [Unknown]
